FAERS Safety Report 6018158-X (Version None)
Quarter: 2008Q4

REPORT INFORMATION
  Report Type: 
  Country: None (occurrence: None)
  Receive Date: 20081223
  Receipt Date: 20081118
  Transmission Date: 20090506
  Serious: No
  Sender: FDA-Public Use
  Company Number: US-BAYER-200838854NA

PATIENT
  Age: 28 Year
  Sex: Female
  Weight: 111 kg

DRUGS (3)
  1. MIRENA [Suspect]
     Indication: CONTRACEPTION
     Route: 015
     Dates: start: 20071112
  2. INSULIN NPH [Concomitant]
  3. INSULIN REGULAR [Concomitant]

REACTIONS (1)
  - PREGNANCY WITH CONTRACEPTIVE DEVICE [None]
